FAERS Safety Report 18940531 (Version 1)
Quarter: 2021Q1

REPORT INFORMATION
  Report Type: Report from Study
  Country: IN (occurrence: IN)
  Receive Date: 20210225
  Receipt Date: 20210225
  Transmission Date: 20210420
  Serious: Yes (Death, Hospitalization)
  Sender: FDA-Public Use
  Company Number: IN-EISAI MEDICAL RESEARCH-EC-2021-088406

PATIENT
  Age: 66 Year
  Sex: Male

DRUGS (1)
  1. LENVIMA [Suspect]
     Active Substance: LENVATINIB
     Indication: HEPATOCELLULAR CARCINOMA
     Route: 048
     Dates: start: 20201219, end: 20210113

REACTIONS (5)
  - Ammonia increased [Unknown]
  - Malignant neoplasm progression [Fatal]
  - Constipation [Unknown]
  - Disorientation [Unknown]
  - Haematochezia [Unknown]

NARRATIVE: CASE EVENT DATE: 20210110
